FAERS Safety Report 21276084 (Version 1)
Quarter: 2022Q3

REPORT INFORMATION
  Report Type: Spontaneous
  Country: US (occurrence: US)
  Receive Date: 20220831
  Receipt Date: 20220831
  Transmission Date: 20221027
  Serious: No
  Sender: FDA-Public Use
  Company Number: US-ABBVIE-22K-163-4399013-00

PATIENT
  Age: 58 Year
  Sex: Female

DRUGS (1)
  1. HUMIRA [Suspect]
     Active Substance: ADALIMUMAB
     Indication: Crohn^s disease
     Route: 058
     Dates: start: 2006, end: 202204

REACTIONS (6)
  - Vasculitis [Recovering/Resolving]
  - Rash [Recovering/Resolving]
  - Skin lesion [Recovering/Resolving]
  - Rash [Not Recovered/Not Resolved]
  - Pustule [Unknown]
  - Blister [Unknown]

NARRATIVE: CASE EVENT DATE: 20210701
